FAERS Safety Report 5452602-1 (Version None)
Quarter: 2007Q3

REPORT INFORMATION
  Report Type: 
  Country: None (occurrence: None)
  Receive Date: 20070914
  Receipt Date: 20070910
  Transmission Date: 20080115
  Serious: Yes (Hospitalization)
  Sender: FDA-Public Use
  Company Number: CA-ASTRAZENECA-2007UW21477

PATIENT
  Age: 58 Year
  Sex: Female

DRUGS (9)
  1. QUETIAPINE FUMARATE [Suspect]
     Indication: DELUSION
     Route: 048
     Dates: start: 20030101, end: 20070909
  2. RANITIDINE [Concomitant]
     Route: 048
  3. PROCHLORPANAZINE [Concomitant]
     Dosage: 5 TO 10 MG Q4H PRN
     Route: 042
  4. RAMIPRIL [Concomitant]
     Route: 048
  5. WARFARIN SODIUM [Concomitant]
     Route: 048
  6. GABAPEOZIN [Concomitant]
     Route: 048
  7. CARVEDILOL [Concomitant]
     Route: 048
  8. FENTANYL [Concomitant]
     Dosage: 25 TO 50 UG Q3H PRN
     Route: 042
  9. METHIMAZOLE [Concomitant]
     Route: 048

REACTIONS (3)
  - CHOLELITHIASIS [None]
  - HALLUCINATION, VISUAL [None]
  - PANCREATITIS [None]
